FAERS Safety Report 14918972 (Version 2)
Quarter: 2018Q3

REPORT INFORMATION
  Report Type: Spontaneous
  Country: US (occurrence: US)
  Receive Date: 20180521
  Receipt Date: 20180706
  Transmission Date: 20181010
  Serious: Yes (Hospitalization, Other)
  Sender: FDA-Public Use
  Company Number: US-AMAG PHARMACEUTICALS, INC.-AMAG201802327

PATIENT
  Age: 22 Year
  Sex: Female
  Weight: 95.24 kg

DRUGS (3)
  1. MAKENA [Suspect]
     Active Substance: HYDROXYPROGESTERONE CAPROATE
     Indication: PREMATURE DELIVERY
     Dosage: 250 MG/ML, WEEKLY
     Route: 030
     Dates: start: 20180110, end: 20180508
  2. IROSPAN [Concomitant]
     Indication: ANAEMIA
     Dosage: 24/6, UNK
     Route: 065
     Dates: start: 20171220
  3. OB COMPLETE [Concomitant]
     Indication: PREGNANCY
     Dosage: 15?5?1?100 MG, UNK
     Route: 065
     Dates: start: 20171219

REACTIONS (2)
  - Premature delivery [Recovered/Resolved]
  - Preterm premature rupture of membranes [Recovered/Resolved]

NARRATIVE: CASE EVENT DATE: 20180513
